FAERS Safety Report 18569990 (Version 1)
Quarter: 2020Q4

REPORT INFORMATION
  Report Type: Spontaneous
  Country: US (occurrence: US)
  Receive Date: 20201202
  Receipt Date: 20201202
  Transmission Date: 20210114
  Serious: Yes (Other)
  Sender: FDA-Public Use
  Company Number: None

PATIENT
  Age: 66 Year
  Sex: Female
  Weight: 82 kg

DRUGS (9)
  1. IBRANCE [Concomitant]
     Active Substance: PALBOCICLIB
  2. ECONAZOLE NITRATE. [Concomitant]
     Active Substance: ECONAZOLE NITRATE
  3. CLONAZEPAM. [Concomitant]
     Active Substance: CLONAZEPAM
  4. AMLODIPINE [Concomitant]
     Active Substance: AMLODIPINE BESYLATE
  5. CAPECITABINE. [Suspect]
     Active Substance: CAPECITABINE
     Indication: NEOPLASM MALIGNANT
     Route: 048
     Dates: start: 20201111, end: 20201202
  6. ONDASETRON [Concomitant]
     Active Substance: ONDANSETRON
  7. METOPROLOL. [Concomitant]
     Active Substance: METOPROLOL
  8. CALCIUM CARBONATE. [Concomitant]
     Active Substance: CALCIUM CARBONATE
  9. CELEBREX [Concomitant]
     Active Substance: CELECOXIB

REACTIONS (1)
  - Dizziness [None]

NARRATIVE: CASE EVENT DATE: 20201202
